FAERS Safety Report 10214013 (Version 1)
Quarter: 2014Q2

REPORT INFORMATION
  Report Type: Spontaneous
  Country: JP (occurrence: None)
  Receive Date: 20140530
  Receipt Date: 20140530
  Transmission Date: 20141212
  Serious: Yes (Hospitalization)
  Sender: FDA-Public Use
  Company Number: FK201402037

PATIENT
  Age: 48 Year
  Sex: Female

DRUGS (4)
  1. PACLITAXEL [Suspect]
     Indication: METASTASES TO SKIN
  2. BEVACIZUMAB [Suspect]
     Indication: METASTASES TO SKIN
  3. ANALGESICS (ANALGESICS) (ANALGESICS) [Concomitant]
  4. OPIOIDS (OPIOIDS) [Concomitant]

REACTIONS (2)
  - Impaired healing [None]
  - Ulcer [None]
